FAERS Safety Report 15368968 (Version 2)
Quarter: 2018Q4

REPORT INFORMATION
  Report Type: Spontaneous
  Country: BR (occurrence: BR)
  Receive Date: 20180911
  Receipt Date: 20181231
  Transmission Date: 20190204
  Serious: Yes (Other)
  Sender: FDA-Public Use
  Company Number: BR-ROCHE-2163824

PATIENT
  Sex: Male
  Weight: 88 kg

DRUGS (1)
  1. XOLAIR [Suspect]
     Active Substance: OMALIZUMAB
     Indication: URTICARIA
     Dosage: UNK
     Route: 058
     Dates: start: 20170730, end: 20180827

REACTIONS (3)
  - Malaise [Unknown]
  - Urticaria [Unknown]
  - Renal disorder [Unknown]
